FAERS Safety Report 21457674 (Version 1)
Quarter: 2022Q4

REPORT INFORMATION
  Report Type: Spontaneous
  Country: IT (occurrence: None)
  Receive Date: 20221014
  Receipt Date: 20221014
  Transmission Date: 20230113
  Serious: Yes (Hospitalization)
  Sender: FDA-Public Use
  Company Number: 2022A340648

PATIENT
  Sex: Male

DRUGS (5)
  1. TICAGRELOR [Suspect]
     Active Substance: TICAGRELOR
     Indication: Antiplatelet therapy
     Route: 048
     Dates: start: 20170901, end: 20220922
  2. ASPIRIN [Suspect]
     Active Substance: ASPIRIN
     Indication: Antiplatelet therapy
     Route: 048
     Dates: start: 20170901, end: 20220922
  3. NORVASC [Concomitant]
     Active Substance: AMLODIPINE BESYLATE
  4. ROSUMIBE [Concomitant]
  5. RAMIPRIL [Concomitant]
     Active Substance: RAMIPRIL

REACTIONS (3)
  - Erosive duodenitis [Recovering/Resolving]
  - Anaemia [Recovering/Resolving]
  - Melaena [Recovering/Resolving]

NARRATIVE: CASE EVENT DATE: 20170901
